FAERS Safety Report 4623912-2 (Version None)
Quarter: 2005Q1

REPORT INFORMATION
  Report Type: 
  Country: None (occurrence: None)
  Receive Date: 20050331
  Receipt Date: 20050127
  Transmission Date: 20050727
  Serious: Yes (Other)
  Sender: FDA-Public Use
  Company Number: CA-ROCHE-393893

PATIENT
  Age: 22 Year
  Sex: Male

DRUGS (3)
  1. LARIAM [Suspect]
     Indication: MALARIA PROPHYLAXIS
     Route: 048
     Dates: start: 20041009, end: 20041023
  2. DUKORAL [Concomitant]
     Route: 048
     Dates: start: 20040615, end: 20040615
  3. VIVOTIF BERNA [Concomitant]
     Route: 048
     Dates: start: 20040615, end: 20040615

REACTIONS (9)
  - DIZZINESS [None]
  - FATIGUE [None]
  - HALLUCINATION [None]
  - HYPOTRICHOSIS [None]
  - LOSS OF CONSCIOUSNESS [None]
  - PANIC ATTACK [None]
  - SOMNOLENCE [None]
  - VOMITING [None]
  - WHITE BLOOD CELL COUNT DECREASED [None]
